FAERS Safety Report 15883902 (Version 1)
Quarter: 2019Q1

REPORT INFORMATION
  Report Type: Other
  Country: FR (occurrence: FR)
  Receive Date: 20190129
  Receipt Date: 20190129
  Transmission Date: 20190417
  Serious: Yes (Hospitalization)
  Sender: FDA-Public Use
  Company Number: FR-ASTELLAS-2019US003085

PATIENT
  Age: 65 Year
  Sex: Female
  Weight: 54 kg

DRUGS (1)
  1. TARCEVA [Suspect]
     Active Substance: ERLOTINIB HYDROCHLORIDE
     Indication: ACUTE LEUKAEMIA
     Route: 048
     Dates: start: 20161226, end: 20170116

REACTIONS (1)
  - Lipase increased [Recovering/Resolving]

NARRATIVE: CASE EVENT DATE: 20161230
